FAERS Safety Report 4790389-6 (Version None)
Quarter: 2005Q4

REPORT INFORMATION
  Report Type: 
  Country: None (occurrence: None)
  Receive Date: 20051006
  Receipt Date: 20050915
  Transmission Date: 20060501
  Serious: Yes (Other)
  Sender: FDA-Public Use
  Company Number: US-BRISTOL-MYERS SQUIBB COMPANY-13112610

PATIENT
  Age: 71 Year
  Sex: Male
  Weight: 67 kg

DRUGS (6)
  1. ERBITUX [Suspect]
     Indication: RECTAL CANCER
     Route: 042
     Dates: start: 20050523
  2. BENADRYL [Concomitant]
  3. COUMADIN [Concomitant]
  4. DECADRON [Concomitant]
  5. TYLENOL (CAPLET) [Concomitant]
  6. VITAMINS [Concomitant]

REACTIONS (1)
  - BLOOD MAGNESIUM DECREASED [None]
